FAERS Safety Report 17263433 (Version 1)
Quarter: 2020Q1

REPORT INFORMATION
  Report Type: Spontaneous
  Country: US (occurrence: US)
  Receive Date: 20200112
  Receipt Date: 20200112
  Transmission Date: 20200409
  Serious: Yes (Other)
  Sender: FDA-Public Use
  Company Number: None

PATIENT
  Age: 71 Year
  Sex: Female
  Weight: 41.85 kg

DRUGS (7)
  1. AMLODIPINE [Concomitant]
     Active Substance: AMLODIPINE BESYLATE
  2. XGEVA [Concomitant]
     Active Substance: DENOSUMAB
  3. VERZENIO [Suspect]
     Active Substance: ABEMACICLIB
     Indication: BREAST CANCER
     Route: 048
     Dates: start: 20191230
  4. EXEMESTANE. [Concomitant]
     Active Substance: EXEMESTANE
  5. FULVESTRANT. [Concomitant]
     Active Substance: FULVESTRANT
  6. IBRANCE [Concomitant]
     Active Substance: PALBOCICLIB
  7. DEXAMETHASONE. [Concomitant]
     Active Substance: DEXAMETHASONE

REACTIONS (1)
  - Product administration error [None]

NARRATIVE: CASE EVENT DATE: 20200111
